FAERS Safety Report 9397541 (Version 2)
Quarter: 2013Q3

REPORT INFORMATION
  Report Type: Report from Study
  Country: JP (occurrence: JP)
  Receive Date: 20130712
  Receipt Date: 20130829
  Transmission Date: 20140515
  Serious: Yes (Hospitalization)
  Sender: FDA-Public Use
  Company Number: JP-AMGEN-JPNCT2013048741

PATIENT
  Age: 84 Year
  Sex: Male
  Weight: 58 kg

DRUGS (16)
  1. DARBEPOETIN ALFA [Suspect]
     Dosage: 120 MUG, QD
     Route: 058
     Dates: start: 20121227, end: 20121227
  2. DARBEPOETIN ALFA [Suspect]
     Dosage: 120 MUG, Q4WK
     Route: 058
     Dates: start: 20130208
  3. FUROSEMIDE [Concomitant]
     Indication: HYPERTENSION
     Dosage: UNK
     Route: 048
  4. AMLODIN [Concomitant]
     Indication: HYPERTENSION
     Dosage: UNK
     Route: 048
  5. OLMETEC [Concomitant]
     Indication: HYPERTENSION
     Dosage: UNK
     Route: 048
  6. DARBEPOETIN ALFA [Suspect]
     Indication: NEPHROGENIC ANAEMIA
     Dosage: 60 MUG, QD
     Route: 058
     Dates: start: 20110615, end: 20110615
  7. DARBEPOETIN ALFA [Suspect]
     Dosage: 60 MUG, Q2WK
     Route: 058
     Dates: start: 20110803, end: 20110817
  8. DARBEPOETIN ALFA [Suspect]
     Dosage: 60 MUG, Q2WK
     Route: 058
     Dates: start: 20110907, end: 20110921
  9. DARBEPOETIN ALFA [Suspect]
     Dosage: 60 MUG, QD
     Route: 058
     Dates: start: 20111109, end: 20111109
  10. DARBEPOETIN ALFA [Suspect]
     Dosage: 60 MUG, QD
     Route: 058
     Dates: start: 20111214, end: 20111214
  11. DARBEPOETIN ALFA [Suspect]
     Dosage: 60 MUG, QD
     Route: 058
     Dates: start: 20120118, end: 20120118
  12. DARBEPOETIN ALFA [Suspect]
     Dosage: 60 MUG, QD
     Route: 058
     Dates: start: 20120222, end: 20120222
  13. DARBEPOETIN ALFA [Suspect]
     Dosage: 120 MUG, QD
     Route: 058
     Dates: start: 20120426, end: 20120426
  14. DARBEPOETIN ALFA [Suspect]
     Dosage: 120 MUG, QD
     Route: 058
     Dates: start: 20120628, end: 20120628
  15. DARBEPOETIN ALFA [Suspect]
     Dosage: 120 MUG, QD
     Route: 058
     Dates: start: 20120816, end: 20120816
  16. DARBEPOETIN ALFA [Suspect]
     Dosage: 120 MUG, Q4WK
     Route: 058
     Dates: start: 20121018, end: 20121115

REACTIONS (2)
  - Radius fracture [Recovered/Resolved]
  - Colon cancer [Recovered/Resolved]
